FAERS Safety Report 8083838-1 (Version None)
Quarter: 2012Q1

REPORT INFORMATION
  Report Type: 
  Country: None (occurrence: None)
  Receive Date: 20120128
  Receipt Date: 20110206
  Transmission Date: 20120608
  Serious: No
  Sender: FDA-Public Use
  Company Number: US-ABBOTT-11P-163-0703051-00

PATIENT
  Age: 59 Year
  Sex: Female

DRUGS (4)
  1. IRON INFUSION [Concomitant]
     Indication: ANAEMIA
  2. PREVACID [Concomitant]
     Indication: DYSPEPSIA
  3. HUMIRA [Suspect]
     Indication: PSORIASIS
     Dates: start: 20090201
  4. THYROID TAB [Concomitant]
     Indication: THYROID DISORDER

REACTIONS (1)
  - HEART RATE INCREASED [None]
